FAERS Safety Report 8556578-X (Version None)
Quarter: 2012Q3

REPORT INFORMATION
  Report Type: 
  Country: None (occurrence: None)
  Receive Date: 20120801
  Receipt Date: 20120723
  Transmission Date: 20120928
  Serious: Yes (Hospitalization, Other)
  Sender: FDA-Public Use
  Company Number: US-BAYER-2010-002143

PATIENT
  Age: 29 Year
  Sex: Female
  Weight: 116.1 kg

DRUGS (12)
  1. VITAMIN TAB [Concomitant]
  2. TYLENOL W/ CODEINE NO. 3 [Concomitant]
  3. HYDROCODONE BITARTRATE AND ACETAMINOPHEN [Concomitant]
     Dosage: UNK
     Dates: start: 20040302
  4. VICODIN [Concomitant]
  5. FIBERCON [Concomitant]
  6. DIFLUCAN [Concomitant]
     Dosage: UNK
     Dates: start: 20030303
  7. TYLENOL (CAPLET) [Concomitant]
  8. REGLAN [Concomitant]
  9. OMEPRAZOLE [Concomitant]
     Dosage: UNK
     Dates: start: 20030216
  10. BACLOFEN [Concomitant]
     Dosage: UNK
     Dates: start: 20040302
  11. YASMIN [Suspect]
     Indication: CONTRACEPTION
     Dosage: UNK
     Dates: start: 20030401, end: 20091001
  12. MEDROXYPROGESTERONE ACETATE [Concomitant]
     Dosage: UNK
     Dates: start: 20030411

REACTIONS (2)
  - CHOLECYSTITIS CHRONIC [None]
  - CHOLELITHIASIS [None]
